FAERS Safety Report 9653355 (Version 1)
Quarter: 2013Q4

REPORT INFORMATION
  Report Type: Spontaneous
  Country: US (occurrence: US)
  Receive Date: 20131029
  Receipt Date: 20131029
  Transmission Date: 20140711
  Serious: No
  Sender: FDA-Public Use
  Company Number: US-PFIZER INC-2013307631

PATIENT
  Age: 65 Year
  Sex: Female
  Weight: 71.66 kg

DRUGS (5)
  1. LIPITOR [Suspect]
     Indication: BLOOD CHOLESTEROL INCREASED
     Dosage: 20 MG, DAILY
  2. ATORVASTATIN CALCIUM [Suspect]
     Indication: BLOOD CHOLESTEROL INCREASED
     Dosage: UNK
  3. ANAPRIL [Concomitant]
     Indication: HYPERTENSION
     Dosage: 300 MG, DAILY
  4. JANUMET [Concomitant]
     Indication: DIABETES MELLITUS
     Dosage: UNK, 1X/DAY
  5. TRICOR [Concomitant]
     Indication: BLOOD CHOLESTEROL INCREASED
     Dosage: UNK

REACTIONS (1)
  - Blood glucose increased [Unknown]
